FAERS Safety Report 9725785 (Version 1)
Quarter: 2013Q4

REPORT INFORMATION
  Report Type: Spontaneous
  Country: US (occurrence: None)
  Receive Date: 20131202
  Receipt Date: 20131202
  Transmission Date: 20140711
  Serious: Yes (Life-Threatening, Hospitalization, Disabling, Other)
  Sender: FDA-Public Use
  Company Number: None

PATIENT
  Sex: 0

DRUGS (1)
  1. XARELTO [Suspect]

REACTIONS (8)
  - Syncope [None]
  - Fall [None]
  - Rib fracture [None]
  - Traumatic lung injury [None]
  - Dizziness [None]
  - Swelling [None]
  - Asthenia [None]
  - Asthenia [None]
